FAERS Safety Report 8172883-3 (Version None)
Quarter: 2012Q1

REPORT INFORMATION
  Report Type: 
  Country: None (occurrence: None)
  Receive Date: 20120229
  Receipt Date: 20120229
  Transmission Date: 20120608
  Serious: No
  Sender: FDA-Public Use
  Company Number: None

PATIENT
  Age: 31 Year
  Sex: Female
  Weight: 61.234 kg

DRUGS (3)
  1. BALZIVA-28 [Suspect]
     Indication: ORAL CONTRACEPTION
     Dosage: 1 TABLET
     Route: 048
     Dates: start: 20120207, end: 20120227
  2. LEVOXYL [Concomitant]
  3. LIOTHYRONINE SODIUM [Concomitant]

REACTIONS (2)
  - METRORRHAGIA [None]
  - MENSTRUAL DISORDER [None]
